FAERS Safety Report 16250722 (Version 1)
Quarter: 2019Q2

REPORT INFORMATION
  Report Type: Spontaneous
  Country: US (occurrence: US)
  Receive Date: 20190429
  Receipt Date: 20190429
  Transmission Date: 20190711
  Serious: No
  Sender: FDA-Public Use
  Company Number: US-AKRON, INC.-2066388

PATIENT
  Sex: Female

DRUGS (1)
  1. BRIMONIDINE TARTRATE OPHTALMIC SOLUTION [Suspect]
     Active Substance: BRIMONIDINE TARTRATE
     Route: 047

REACTIONS (1)
  - Ocular hyperaemia [Unknown]
